FAERS Safety Report 8837825 (Version 1)
Quarter: 2012Q4

REPORT INFORMATION
  Report Type: Report from Study
  Country: US (occurrence: US)
  Receive Date: 20121012
  Receipt Date: 20121012
  Transmission Date: 20130627
  Serious: Yes (Other)
  Sender: FDA-Public Use
  Company Number: US-ABBOTT-12P-163-0991774-00

PATIENT
  Age: 42 Year
  Sex: Female

DRUGS (1)
  1. HUMIRA [Suspect]
     Indication: PSORIATIC ARTHROPATHY
     Dates: start: 200803

REACTIONS (16)
  - Medical device removal [Not Recovered/Not Resolved]
  - Scar [Unknown]
  - Impaired healing [Unknown]
  - Bladder neck suspension [Unknown]
  - Rheumatoid arthritis [Unknown]
  - Feeling hot [Unknown]
  - Pain [Unknown]
  - Arthralgia [Unknown]
  - Hand deformity [Unknown]
  - Pain in extremity [Unknown]
  - Sensory disturbance [Unknown]
  - Drug effect decreased [Unknown]
  - Device malfunction [Unknown]
  - Incorrect dose administered [Unknown]
  - Injection site vesicles [Unknown]
  - Injection site erythema [Unknown]
